FAERS Safety Report 4835453-8 (Version None)
Quarter: 2005Q4

REPORT INFORMATION
  Report Type: 
  Country: None (occurrence: None)
  Receive Date: 20051122
  Receipt Date: 20051122
  Transmission Date: 20060501
  Serious: Yes (Hospitalization)
  Sender: FDA-Public Use
  Company Number: None

PATIENT
  Weight: 105.3 kg

DRUGS (3)
  1. SPIRONOLACTONE [Suspect]
     Indication: CARDIAC FAILURE CONGESTIVE
     Dosage: 50 MG Q DAY PO
     Route: 048
  2. FUROSEMIDE [Suspect]
     Indication: CARDIAC FAILURE CONGESTIVE
     Dosage: 80 MG BID PO
     Route: 048
  3. K-DUR 10 [Concomitant]

REACTIONS (2)
  - ASTHENIA [None]
  - DIARRHOEA [None]
